FAERS Safety Report 4378908-5 (Version None)
Quarter: 2004Q2

REPORT INFORMATION
  Report Type: 
  Country: None (occurrence: None)
  Receive Date: 20040610
  Receipt Date: 20040528
  Transmission Date: 20050107
  Serious: Yes (Hospitalization)
  Sender: FDA-Public Use
  Company Number: 9953630

PATIENT
  Age: 56 Year
  Sex: Male

DRUGS (7)
  1. ATARAX [Suspect]
     Indication: ILL-DEFINED DISORDER
     Dosage: 100 MG, ORAL
     Route: 048
     Dates: start: 19991001, end: 19991001
  2. SOTALOL HCL [Suspect]
     Indication: ILL-DEFINED DISORDER
     Dosage: ORAL
     Route: 048
     Dates: start: 19991001, end: 19991001
  3. MIDAZOLAM HCL [Suspect]
     Indication: ILL-DEFINED DISORDER
     Dosage: 3 MG, INTRAVENOUS
     Route: 042
     Dates: start: 19991001, end: 19991001
  4. PROPOFOL [Suspect]
     Indication: ILL-DEFINED DISORDER
     Dosage: 120 MG, INTRAVENOUS
     Route: 042
     Dates: start: 19991001, end: 19991001
  5. SUFENTANIL CITRATE [Suspect]
     Indication: ILL-DEFINED DISORDER
     Dosage: INTRATHECAL
     Route: 037
     Dates: start: 19991001, end: 19991001
  6. ISOFLURANE [Suspect]
     Indication: ILL-DEFINED DISORDER
     Dosage: INTRAVENOUS
     Route: 042
     Dates: start: 19991001, end: 19991001
  7. ALL OTHER THERAPEUTIC PRODUCTS (ALL OTHER THERAPEUTIC PRODUCTS) [Concomitant]

REACTIONS (2)
  - IRIDOCYCLITIS [None]
  - VITREOUS DISORDER [None]
